FAERS Safety Report 17118309 (Version 3)
Quarter: 2021Q4

REPORT INFORMATION
  Report Type: Spontaneous
  Country: US (occurrence: US)
  Receive Date: 20191205
  Receipt Date: 20211005
  Transmission Date: 20220303
  Serious: Yes (Other)
  Sender: FDA-Public Use
  Company Number: US-BIOMARINAP-US-2019-127219

PATIENT
  Age: 6 Year

DRUGS (1)
  1. ALDURAZYME [Suspect]
     Active Substance: LARONIDASE
     Indication: Mucopolysaccharidosis I
     Dosage: 14.5 MILLIGRAM, QW
     Route: 042
     Dates: start: 20180323

REACTIONS (10)
  - Arnold-Chiari malformation [Recovered/Resolved]
  - Muscle tightness [Recovered/Resolved]
  - Dental caries [Not Recovered/Not Resolved]
  - Tooth loss [Not Recovered/Not Resolved]
  - Anxiety [Not Recovered/Not Resolved]
  - Frustration tolerance decreased [Not Recovered/Not Resolved]
  - Reading disorder [Not Recovered/Not Resolved]
  - Cyst removal [Recovered/Resolved]
  - Adenotonsillectomy [Recovered/Resolved]
  - Ear tube insertion [Recovered/Resolved]
